FAERS Safety Report 5752714-9 (Version None)
Quarter: 2008Q2

REPORT INFORMATION
  Report Type: 
  Country: None (occurrence: None)
  Receive Date: 20080529
  Receipt Date: 20080522
  Transmission Date: 20081010
  Serious: Yes (Other)
  Sender: FDA-Public Use
  Company Number: US-PFIZER INC-2004022024

PATIENT
  Age: 53 Year
  Sex: Male

DRUGS (7)
  1. LIPITOR [Suspect]
     Indication: BLOOD CHOLESTEROL INCREASED
  2. ZESTRIL [Concomitant]
  3. NORVASC [Concomitant]
  4. ACETYLSALICYLIC ACID SRT [Concomitant]
  5. ALL OTHER THERAPEUTIC PRODUCTS [Concomitant]
  6. ATENOLOL [Concomitant]
  7. LASIX [Concomitant]

REACTIONS (2)
  - HEPATIC ENZYME INCREASED [None]
  - LIVER INJURY [None]
